FAERS Safety Report 5637215-0 (Version None)
Quarter: 2008Q1

REPORT INFORMATION
  Report Type: 
  Country: None (occurrence: None)
  Receive Date: 20080225
  Receipt Date: 20080214
  Transmission Date: 20080703
  Serious: Yes (Disabling)
  Sender: FDA-Public Use
  Company Number: CA-AVENTIS-200715354EU

PATIENT
  Age: 62 Year
  Sex: Female

DRUGS (12)
  1. FUROSEMIDE [Suspect]
     Route: 042
     Dates: start: 20071109, end: 20071109
  2. PREDNISONE TAB [Suspect]
     Dosage: DOSE: 15MG ONE DAY -5 MG THE NEXT DAY
  3. NOVASEN [Concomitant]
  4. APO-ALENDRONATE [Concomitant]
  5. APO-METRONIDAZOLE [Concomitant]
     Dates: start: 20071028, end: 20071109
  6. MAVIK [Concomitant]
  7. RIVA-D [Concomitant]
  8. APO-HYDRO [Concomitant]
  9. FOLIC ACID [Concomitant]
  10. OMEPRAZOLE [Concomitant]
  11. PREMARIN [Concomitant]
  12. MEDROXYPROGESTERONE [Concomitant]
     Dosage: DOSE: 10MG DAILY FOR 10 DAYS PER MONTH

REACTIONS (1)
  - ABASIA [None]
